FAERS Safety Report 25538458 (Version 1)
Quarter: 2025Q3

REPORT INFORMATION
  Report Type: Spontaneous
  Country: US (occurrence: None)
  Receive Date: 20250709
  Receipt Date: 20250709
  Transmission Date: 20251021
  Serious: Yes (Life-Threatening, Disabling)
  Sender: FDA-CTU
  Company Number: None

PATIENT
  Age: 53 Year
  Sex: Male
  Weight: 81 kg

DRUGS (1)
  1. ESCITALOPRAM [Suspect]
     Active Substance: ESCITALOPRAM OXALATE
     Indication: Insomnia
     Dates: start: 20060923, end: 20060923

REACTIONS (21)
  - Serotonin syndrome [None]
  - Suicidal ideation [None]
  - Quality of life decreased [None]
  - Electric shock sensation [None]
  - Electric shock sensation [None]
  - Anxiety [None]
  - Fear [None]
  - Head discomfort [None]
  - Influenza like illness [None]
  - Akathisia [None]
  - Dizziness [None]
  - Tinnitus [None]
  - Tachyphrenia [None]
  - Violence-related symptom [None]
  - Hallucination, visual [None]
  - Screaming [None]
  - Cerebrovascular accident [None]
  - Depression [None]
  - Disturbance in attention [None]
  - Affect lability [None]
  - Hyperacusis [None]

NARRATIVE: CASE EVENT DATE: 20060923
